FAERS Safety Report 15739674 (Version 2)
Quarter: 2019Q1

REPORT INFORMATION
  Report Type: Report from Study
  Country: IE (occurrence: IE)
  Receive Date: 20181219
  Receipt Date: 20190108
  Transmission Date: 20190417
  Serious: Yes (Other)
  Sender: FDA-Public Use
  Company Number: IE-JNJFOC-20181217927

PATIENT
  Age: 73 Year
  Sex: Female

DRUGS (10)
  1. FOLIC ACID. [Concomitant]
     Active Substance: FOLIC ACID
     Route: 050
  2. METFORMIN [Concomitant]
     Active Substance: METFORMIN HYDROCHLORIDE
     Route: 050
  3. STELARA [Suspect]
     Active Substance: USTEKINUMAB
     Indication: PSORIASIS
     Dosage: FREQUENCY AS PER PRESCRIPTION
     Route: 058
     Dates: start: 20150206
  4. METHOTREXATE. [Concomitant]
     Active Substance: METHOTREXATE
     Route: 050
  5. DELTACORTRIL [Concomitant]
     Active Substance: PREDNISOLONE
     Route: 050
  6. CALCICHEW [Concomitant]
     Active Substance: CALCIUM CARBONATE
     Route: 050
  7. ELTROXIN [Concomitant]
     Active Substance: LEVOTHYROXINE
     Route: 050
  8. LIPITOR [Concomitant]
     Active Substance: ATORVASTATIN CALCIUM
     Route: 050
  9. ZOTON [Concomitant]
     Active Substance: LANSOPRAZOLE
     Route: 050
  10. PREDNISOLONE. [Concomitant]
     Active Substance: PREDNISOLONE
     Route: 050

REACTIONS (1)
  - Lower respiratory tract infection [Recovered/Resolved]

NARRATIVE: CASE EVENT DATE: 20181213
